FAERS Safety Report 8281623-9 (Version None)
Quarter: 2012Q2

REPORT INFORMATION
  Report Type: 
  Country: None (occurrence: None)
  Receive Date: 20120413
  Receipt Date: 20120403
  Transmission Date: 20120825
  Serious: Yes (Other)
  Sender: FDA-Public Use
  Company Number: CA-JNJFOC-20120402399

PATIENT
  Sex: Male
  Weight: 96 kg

DRUGS (2)
  1. CORTISONE CREAM [Concomitant]
     Route: 061
  2. REMICADE [Suspect]
     Indication: PSORIASIS
     Route: 042
     Dates: start: 20100506

REACTIONS (2)
  - SKIN PLAQUE [None]
  - PRURITUS GENERALISED [None]
